FAERS Safety Report 5429812-2 (Version None)
Quarter: 2007Q3

REPORT INFORMATION
  Report Type: 
  Country: None (occurrence: None)
  Receive Date: 20070829
  Receipt Date: 20070817
  Transmission Date: 20080115
  Serious: Yes (Other)
  Sender: FDA-Public Use
  Company Number: US-PFIZER INC-2007054757

PATIENT
  Sex: Female
  Weight: 78 kg

DRUGS (11)
  1. CHANTIX [Suspect]
     Indication: SMOKING CESSATION THERAPY
  2. LEVOTHYROXINE SODIUM [Concomitant]
  3. BUMEX [Concomitant]
  4. POTASSIUM CHLORIDE [Concomitant]
  5. TOPROL-XL [Concomitant]
  6. ALLOPURINOL [Concomitant]
  7. ASPIRIN [Concomitant]
  8. LIPITOR [Concomitant]
  9. MECLIZINE [Concomitant]
  10. WARFARIN [Concomitant]
  11. SYNTHROID [Concomitant]

REACTIONS (5)
  - COAGULOPATHY [None]
  - HAEMATOLOGY TEST ABNORMAL [None]
  - NAUSEA [None]
  - NOCTURIA [None]
  - SKIN LACERATION [None]
